FAERS Safety Report 7458654-1 (Version None)
Quarter: 2011Q2

REPORT INFORMATION
  Report Type: 
  Country: None (occurrence: None)
  Receive Date: 20110504
  Receipt Date: 20110419
  Transmission Date: 20111010
  Serious: Yes (Hospitalization, Other)
  Sender: FDA-Public Use
  Company Number: US-CELGENEUS-163-21880-11010315

PATIENT
  Sex: Female
  Weight: 68.9 kg

DRUGS (20)
  1. REVLIMID [Suspect]
     Dosage: 5 MILLIGRAM
     Route: 048
     Dates: start: 20110328
  2. ZOLEDRONIC ACID [Concomitant]
     Route: 051
     Dates: start: 20101122
  3. METOPROLOL SUCCINATE [Concomitant]
     Dosage: 50 MILLIGRAM
     Route: 048
  4. PROCHLORPERAZINE TAB [Concomitant]
     Indication: NAUSEA
     Dosage: 10 MILLIGRAM
     Route: 048
  5. ZOLEDRONIC ACID [Concomitant]
     Indication: MULTIPLE MYELOMA
     Dosage: 5 MG
     Route: 051
     Dates: start: 20100929
  6. PRILOSEC [Concomitant]
     Dosage: 20 MILLIGRAM
     Route: 048
  7. AMBIEN [Concomitant]
     Dosage: 5MG-10MG
     Route: 048
  8. REVLIMID [Suspect]
     Indication: MULTIPLE MYELOMA
     Dosage: 10 MILLIGRAM
     Route: 048
     Dates: start: 20101201
  9. WARFARIN SODIUM [Concomitant]
     Indication: PROPHYLAXIS
     Route: 065
     Dates: start: 20101201
  10. ASPIRIN [Concomitant]
     Dosage: 81 MILLIGRAM
     Route: 065
     Dates: start: 20110105
  11. VITAMIN B-12 [Concomitant]
     Route: 065
  12. ACYCLOVIR [Concomitant]
     Indication: PROPHYLAXIS
     Dosage: 800 MILLIGRAM
     Route: 065
     Dates: start: 20101201
  13. PRAVACHOL [Concomitant]
     Dosage: 20 MILLIGRAM
     Route: 048
  14. VITAMIN D [Concomitant]
     Dosage: 2000 UNITS
     Route: 048
  15. ACETAMINOPHEN [Concomitant]
     Indication: PAIN
     Dosage: 1000 MILLIGRAM
     Route: 048
  16. IMODIUM A-D [Concomitant]
     Route: 048
  17. DEXAMETHASONE [Concomitant]
     Indication: MULTIPLE MYELOMA
     Dosage: 40 MILLIGRAM
     Route: 048
     Dates: start: 20101201
  18. NORVASC [Concomitant]
     Indication: HYPERTENSION
     Dosage: 10 MILLIGRAM
     Route: 048
  19. LISINOPRIL [Concomitant]
     Indication: HYPERTENSION
     Dosage: 10 MILLIGRAM
     Route: 048
  20. PROTON PUMP INHIBITOR [Concomitant]
     Indication: PROPHYLAXIS
     Route: 065

REACTIONS (7)
  - THROMBOCYTOPENIA [None]
  - HYPERTENSION [None]
  - RASH [None]
  - HAEMATURIA [None]
  - NEUTROPENIA [None]
  - INTERNATIONAL NORMALISED RATIO INCREASED [None]
  - ANAEMIA [None]
